FAERS Safety Report 4469098-9 (Version None)
Quarter: 2004Q4

REPORT INFORMATION
  Report Type: 
  Country: None (occurrence: None)
  Receive Date: 20041005
  Receipt Date: 20040924
  Transmission Date: 20050328
  Serious: No
  Sender: FDA-Public Use
  Company Number: 2004-0084-EUR

PATIENT
  Age: 11 Year
  Sex: Female

DRUGS (2)
  1. XYLOCAINE W/ EPINEPHRINE [Suspect]
     Indication: TOOTH EXTRACTION
     Dosage: (0.0018 LIT, ONCE)
     Route: 042
     Dates: start: 20030903, end: 20030903
  2. XYLOCAINE W/ EPINEPHRINE [Suspect]
     Indication: TOOTH EXTRACTION
     Dosage: (0.0018 LIT, ONCE)
     Route: 042
     Dates: start: 20031014, end: 20031014

REACTIONS (1)
  - POST PROCEDURAL PAIN [None]
